FAERS Safety Report 24884188 (Version 1)
Quarter: 2025Q1

REPORT INFORMATION
  Report Type: Spontaneous
  Country: AR (occurrence: AR)
  Receive Date: 20250124
  Receipt Date: 20250124
  Transmission Date: 20250409
  Serious: Yes (Death)
  Sender: BOEHRINGER INGELHEIM
  Company Number: AR-BoehringerIngelheim-2025-BI-004141

PATIENT
  Age: 76 Year
  Sex: Male
  Weight: 95 kg

DRUGS (10)
  1. JARDIANCE [Suspect]
     Active Substance: EMPAGLIFLOZIN
     Indication: Type 2 diabetes mellitus
  2. JARDIANCE [Suspect]
     Active Substance: EMPAGLIFLOZIN
     Indication: Cardiac failure
  3. ASPIRIN [Concomitant]
     Active Substance: ASPIRIN
  4. INSULIN NOS [Concomitant]
     Active Substance: INSULIN NOS
  5. FUROSEMIDE [Concomitant]
     Active Substance: FUROSEMIDE
  6. ENALAPRIL [Concomitant]
     Active Substance: ENALAPRIL
  7. CARVEDILOL [Concomitant]
     Active Substance: CARVEDILOL
  8. UNSPECIFIED INGREDIENT [Concomitant]
     Active Substance: UNSPECIFIED INGREDIENT
  9. unspecified NSAID [Concomitant]
  10. METFORMIN [Concomitant]
     Active Substance: METFORMIN HYDROCHLORIDE

REACTIONS (1)
  - Cardiovascular disorder [Fatal]

NARRATIVE: CASE EVENT DATE: 20230610
